FAERS Safety Report 12181971 (Version 1)
Quarter: 2016Q1

REPORT INFORMATION
  Report Type: Spontaneous
  Country: DE (occurrence: DE)
  Receive Date: 20160315
  Receipt Date: 20160315
  Transmission Date: 20160526
  Serious: Yes (Hospitalization)
  Sender: FDA-Public Use
  Company Number: DE-ABBVIE-16P-062-1584168-00

PATIENT
  Age: 43 Year
  Sex: Female

DRUGS (1)
  1. VALPROATE SODIUM. [Suspect]
     Active Substance: VALPROATE SODIUM
     Indication: DEPRESSION
     Route: 048
     Dates: start: 1997

REACTIONS (6)
  - Vaginal abscess [Unknown]
  - Skin fissures [Unknown]
  - Memory impairment [Unknown]
  - Dermatitis [Unknown]
  - Sensory disturbance [Unknown]
  - Loss of consciousness [Unknown]

NARRATIVE: CASE EVENT DATE: 2001
